FAERS Safety Report 8448486-X (Version None)
Quarter: 2012Q2

REPORT INFORMATION
  Report Type: 
  Country: None (occurrence: None)
  Receive Date: 20120619
  Receipt Date: 20120604
  Transmission Date: 20120825
  Serious: Yes (Other)
  Sender: FDA-Public Use
  Company Number: TR-ROCHE-1077361

PATIENT
  Age: 47 Year
  Sex: Male

DRUGS (1)
  1. AVASTIN [Suspect]
     Indication: CYSTOID MACULAR OEDEMA
     Dosage: 1.25 MG/0.05 CC
     Route: 050

REACTIONS (2)
  - CONJUNCTIVAL OEDEMA [None]
  - ANGIOEDEMA [None]
